FAERS Safety Report 7775301-X (Version None)
Quarter: 2011Q3

REPORT INFORMATION
  Report Type: 
  Country: None (occurrence: None)
  Receive Date: 20110923
  Receipt Date: 20110922
  Transmission Date: 20111222
  Serious: Yes (Life-Threatening, Hospitalization, Other)
  Sender: FDA-Public Use
  Company Number: DK-ABBOTT-11P-044-0838855-00

PATIENT
  Sex: Female

DRUGS (2)
  1. METHOTREXATE [Concomitant]
     Indication: RHEUMATOID ARTHRITIS
     Route: 048
     Dates: start: 20060314
  2. HUMIRA [Suspect]
     Indication: ANKYLOSING SPONDYLITIS
     Dates: start: 20080513

REACTIONS (8)
  - LOSS OF CONSCIOUSNESS [None]
  - CEREBRAL ARTERY EMBOLISM [None]
  - APHASIA [None]
  - COMA [None]
  - PULMONARY EMBOLISM [None]
  - DRUG INEFFECTIVE [None]
  - CONVULSION [None]
  - HEMIPARESIS [None]
